FAERS Safety Report 13944733 (Version 1)
Quarter: 2017Q3

REPORT INFORMATION
  Report Type: Spontaneous
  Country: US (occurrence: US)
  Receive Date: 20170907
  Receipt Date: 20170907
  Transmission Date: 20171128
  Serious: Yes (Other)
  Sender: FDA-Public Use
  Company Number: US-ROCHE-1236807

PATIENT
  Sex: Female

DRUGS (8)
  1. CORTISONE [Concomitant]
     Active Substance: CORTISONE\HYDROCORTISONE
  2. ACTEMRA [Concomitant]
     Active Substance: TOCILIZUMAB
     Route: 065
  3. HUMIRA [Concomitant]
     Active Substance: ADALIMUMAB
  4. ORENCIA [Concomitant]
     Active Substance: ABATACEPT
  5. RITUXAN [Suspect]
     Active Substance: RITUXIMAB
     Indication: RHEUMATOID ARTHRITIS
     Dosage: DAY 1 AND 15, EVERY 6 WEEKS
     Route: 042
  6. ENBREL [Concomitant]
     Active Substance: ETANERCEPT
  7. REMICADE [Concomitant]
     Active Substance: INFLIXIMAB
  8. RITUXAN [Suspect]
     Active Substance: RITUXIMAB
     Dosage: 6 YEARS AGO
     Route: 042

REACTIONS (1)
  - Infusion related reaction [Unknown]
